FAERS Safety Report 8954060 (Version 1)
Quarter: 2012Q4

REPORT INFORMATION
  Report Type: 
  Country: FR (occurrence: FR)
  Receive Date: 20121207
  Receipt Date: 20121207
  Transmission Date: 20130627
  Serious: Yes (Hospitalization)
  Sender: FDA-Public Use
  Company Number: FR-BRISTOL-MYERS SQUIBB COMPANY-17164807

PATIENT
  Age: 64 Year
  Sex: Female

DRUGS (7)
  1. COUMADIN [Suspect]
     Route: 048
     Dates: start: 20120813
  2. CARDENSIEL [Suspect]
     Indication: DYSPNOEA
     Dosage: tabs
     Route: 048
     Dates: start: 201206
  3. TRACLEER [Suspect]
     Indication: PULMONARY ARTERIAL HYPERTENSION
     Dosage: tabs.
     Route: 048
     Dates: start: 201206
  4. ZOPHREN [Suspect]
     Indication: NAUSEA
     Dosage: tabs
     Route: 048
     Dates: start: 20120821
  5. PRIMPERAN [Suspect]
     Indication: NAUSEA
     Route: 048
     Dates: start: 20120821
  6. ERIBULIN MESYLATE [Suspect]
     Indication: BREAST CANCER
     Route: 042
     Dates: start: 20120712, end: 20120809
  7. CAELYX [Suspect]
     Indication: BREAST CANCER
     Route: 042
     Dates: start: 20110505, end: 201201

REACTIONS (4)
  - Cardiogenic shock [Recovering/Resolving]
  - Right ventricular failure [Recovering/Resolving]
  - Pulmonary arterial hypertension [Recovering/Resolving]
  - Renal failure acute [Recovering/Resolving]
